FAERS Safety Report 5877134-8 (Version None)
Quarter: 2008Q3

REPORT INFORMATION
  Report Type: 
  Country: None (occurrence: None)
  Receive Date: 20080908
  Receipt Date: 20080908
  Transmission Date: 20090109
  Serious: Yes (Life-Threatening)
  Sender: FDA-Public Use
  Company Number: None

PATIENT
  Age: 76 Year
  Sex: Female
  Weight: 75.2971 kg

DRUGS (1)
  1. KLOR-CON M20 [Suspect]
     Indication: BLOOD POTASSIUM DECREASED
     Dosage: 1 2X A DAY PO
     Route: 048

REACTIONS (4)
  - FEAR [None]
  - FOREIGN BODY TRAUMA [None]
  - MORBID THOUGHTS [None]
  - PHARMACEUTICAL PRODUCT COMPLAINT [None]
